FAERS Safety Report 24168019 (Version 1)
Quarter: 2024Q3

REPORT INFORMATION
  Report Type: Spontaneous
  Country: US (occurrence: US)
  Receive Date: 20240802
  Receipt Date: 20240802
  Transmission Date: 20241017
  Serious: Yes (Death)
  Sender: PHARMAESSENTIA
  Company Number: US-PHARMAESSENTIA-US-2024-PEC-004239

PATIENT
  Sex: Female

DRUGS (1)
  1. BESREMI [Suspect]
     Active Substance: ROPEGINTERFERON ALFA-2B-NJFT
     Indication: Product used for unknown indication
     Dosage: 500 MCG
     Route: 065

REACTIONS (1)
  - Cerebrovascular accident [Fatal]
